FAERS Safety Report 19687417 (Version 1)
Quarter: 2021Q3

REPORT INFORMATION
  Report Type: Spontaneous
  Country: US (occurrence: US)
  Receive Date: 20210811
  Receipt Date: 20210811
  Transmission Date: 20211014
  Serious: Yes (Other)
  Sender: FDA-Public Use
  Company Number: US-PFIZER INC-202100978730

PATIENT
  Age: 71 Year
  Sex: Male

DRUGS (1)
  1. FELDENE [Suspect]
     Active Substance: PIROXICAM
     Indication: RHEUMATOID ARTHRITIS
     Dosage: UNK

REACTIONS (1)
  - Renal impairment [Unknown]
